FAERS Safety Report 19998268 (Version 1)
Quarter: 2021Q4

REPORT INFORMATION
  Report Type: Spontaneous
  Country: HU (occurrence: HU)
  Receive Date: 20211026
  Receipt Date: 20211026
  Transmission Date: 20220303
  Serious: Yes (Other)
  Sender: FDA-Public Use
  Company Number: HU-PFIZER INC-202101373037

PATIENT
  Age: 70 Year
  Sex: Male

DRUGS (1)
  1. PALBOCICLIB [Suspect]
     Active Substance: PALBOCICLIB
     Indication: Hormone receptor positive breast cancer
     Dosage: UNK

REACTIONS (4)
  - Second primary malignancy [Unknown]
  - Transitional cell carcinoma [Unknown]
  - Off label use [Unknown]
  - Product use issue [Unknown]
